FAERS Safety Report 10355441 (Version 1)
Quarter: 2014Q3

REPORT INFORMATION
  Report Type: Spontaneous
  Country: US (occurrence: None)
  Receive Date: 20140729
  Receipt Date: 20140729
  Transmission Date: 20150326
  Serious: Yes (Hospitalization, Other)
  Sender: FDA-Public Use
  Company Number: 2014-US-009095

PATIENT
  Age: 55 Year
  Sex: Male
  Weight: 136 kg

DRUGS (8)
  1. GLIMEPIRIDE. [Concomitant]
     Active Substance: GLIMEPIRIDE
  2. GENERIC PROVIGIL (MODAFINIL) [Concomitant]
  3. FENOFIBRATE. [Concomitant]
     Active Substance: FENOFIBRATE
  4. XYREM [Suspect]
     Active Substance: SODIUM OXYBATE
     Indication: NARCOLEPSY
     Route: 048
     Dates: start: 200701, end: 200702
  5. TRICOR [Concomitant]
     Active Substance: FENOFIBRATE
  6. XYREM [Suspect]
     Active Substance: SODIUM OXYBATE
     Indication: SOMNOLENCE
     Route: 048
     Dates: start: 200701, end: 200702
  7. METFORMIN [Concomitant]
     Active Substance: METFORMIN HYDROCHLORIDE
  8. VALSARTAN + HIDROCLOROTIAZIDA (HYDROCHLOROTHIAZIDE, VALSARTAN) [Concomitant]

REACTIONS (5)
  - Somnambulism [None]
  - Prostate cancer [None]
  - Sleep-related eating disorder [None]
  - Prostate infection [None]
  - Finger amputation [None]

NARRATIVE: CASE EVENT DATE: 201404
